FAERS Safety Report 5308787-0 (Version None)
Quarter: 2007Q2

REPORT INFORMATION
  Report Type: 
  Country: None (occurrence: None)
  Receive Date: 20070426
  Receipt Date: 20070411
  Transmission Date: 20071010
  Serious: Yes (Hospitalization)
  Sender: FDA-Public Use
  Company Number: US-SHR-US-2007-005114

PATIENT
  Age: 47 Year
  Sex: Male

DRUGS (13)
  1. BETASERON [Suspect]
     Indication: RELAPSING-REMITTING MULTIPLE SCLEROSIS
     Dosage: 8 MIU, EVERY 2D
     Route: 058
     Dates: start: 19940503
  2. ASPIRIN [Concomitant]
     Dosage: 325 MG, UNK
  3. ZOLOFT [Concomitant]
  4. DETROL [Concomitant]
  5. TRICOR [Concomitant]
  6. TOPROL-XL [Concomitant]
  7. LIPITOR [Concomitant]
  8. ALTACE [Concomitant]
  9. NIACIN [Concomitant]
  10. MIRALAX [Concomitant]
  11. FLONASE [Concomitant]
     Dosage: UNK, AS REQ'D
  12. NITROGLYCERIN [Concomitant]
     Dosage: UNK, AS REQ'D
  13. FISH OIL [Concomitant]

REACTIONS (4)
  - CHOLELITHIASIS [None]
  - FALL [None]
  - INJECTION SITE BRUISING [None]
  - INJECTION SITE ERYTHEMA [None]
